FAERS Safety Report 18651324 (Version 1)
Quarter: 2020Q4

REPORT INFORMATION
  Report Type: Report from Study
  Country: US (occurrence: US)
  Receive Date: 20201222
  Receipt Date: 20201222
  Transmission Date: 20210114
  Serious: Yes (Other)
  Sender: FDA-Public Use
  Company Number: US-EMD SERONO-9207245

PATIENT
  Age: 45 Year
  Sex: Male

DRUGS (1)
  1. MAVENCLAD [Suspect]
     Active Substance: CLADRIBINE
     Indication: MULTIPLE SCLEROSIS
     Route: 048
     Dates: start: 20200318

REACTIONS (8)
  - Loss of consciousness [Not Recovered/Not Resolved]
  - Fall [Unknown]
  - Dizziness [Unknown]
  - Suspected COVID-19 [Unknown]
  - Nausea [Unknown]
  - Contusion [Unknown]
  - Asthenia [Unknown]
  - Arthralgia [Unknown]

NARRATIVE: CASE EVENT DATE: 20201204
